FAERS Safety Report 13701549 (Version 1)
Quarter: 2017Q2

REPORT INFORMATION
  Report Type: Spontaneous
  Country: US (occurrence: US)
  Receive Date: 20170629
  Receipt Date: 20170629
  Transmission Date: 20170830
  Serious: No
  Sender: FDA-Public Use
  Company Number: US-BAYER-2017-116062

PATIENT
  Age: 79 Year
  Sex: Female
  Weight: 48.98 kg

DRUGS (2)
  1. MIRALAX [Suspect]
     Active Substance: POLYETHYLENE GLYCOL 3350
     Indication: COLONOSCOPY
     Dosage: UNK
     Route: 048
     Dates: start: 20170613, end: 20170614
  2. MAGNESIUM CITRATE. [Concomitant]
     Active Substance: MAGNESIUM CITRATE

REACTIONS (7)
  - Product use in unapproved indication [Unknown]
  - Drug ineffective [Unknown]
  - Off label use [Unknown]
  - Gastrointestinal motility disorder [Unknown]
  - Gastrointestinal disorder [Recovered/Resolved]
  - Intestinal polyp [Not Recovered/Not Resolved]
  - Intentional product use issue [None]

NARRATIVE: CASE EVENT DATE: 20170613
